FAERS Safety Report 11778212 (Version 2)
Quarter: 2015Q4

REPORT INFORMATION
  Report Type: Spontaneous
  Country: DE (occurrence: DE)
  Receive Date: 20151125
  Receipt Date: 20151204
  Transmission Date: 20160304
  Serious: Yes (Hospitalization)
  Sender: FDA-Public Use
  Company Number: DE-B.I. PHARMACEUTICALS,INC./RIDGEFIELD-2015-BI-65164DE

PATIENT
  Sex: Male

DRUGS (2)
  1. TEBONIN [Suspect]
     Active Substance: GINKGO
     Indication: DIZZINESS
     Dosage: 80 MG
     Route: 065
  2. PRADAXA [Suspect]
     Active Substance: DABIGATRAN ETEXILATE MESYLATE
     Indication: PRODUCT USED FOR UNKNOWN INDICATION
     Dosage: 220 MG
     Route: 065
     Dates: start: 2012

REACTIONS (7)
  - Gastric disorder [Unknown]
  - Dizziness [Unknown]
  - Coagulopathy [Unknown]
  - Prothrombin time prolonged [Unknown]
  - International normalised ratio increased [Unknown]
  - Haemorrhage [Unknown]
  - Drug interaction [Unknown]
